FAERS Safety Report 21393452 (Version 1)
Quarter: 2022Q3

REPORT INFORMATION
  Report Type: Spontaneous
  Country: CH (occurrence: None)
  Receive Date: 20220929
  Receipt Date: 20220929
  Transmission Date: 20221027
  Serious: Yes (Other)
  Sender: FDA-Public Use
  Company Number: 2022A332145

PATIENT
  Age: 43 Year
  Sex: Female

DRUGS (5)
  1. DAPAGLIFLOZIN [Suspect]
     Active Substance: DAPAGLIFLOZIN
     Indication: Cardiac failure
     Dosage: START BETWEEN 07.09.2022 AND 08.09.2022
     Route: 048
     Dates: start: 202209
  2. METOPROLOL [Suspect]
     Active Substance: METOPROLOL
     Indication: Cardiac failure
     Dosage: START BETWEEN 07.09.2022 AND 08.09.2022
     Route: 048
     Dates: start: 202209
  3. ASPIRIN [Suspect]
     Active Substance: ASPIRIN
     Indication: Cardiac failure
     Dosage: START BETWEEN 07.09.2022 AND 08.09.2022
     Route: 048
     Dates: start: 202209
  4. ALDACTONE [Suspect]
     Active Substance: SPIRONOLACTONE
     Indication: Cardiac failure
     Dosage: START BETWEEN 07.09.2022 AND 08.09.2022
     Route: 048
     Dates: start: 202209
  5. ENTRESTO [Suspect]
     Active Substance: SACUBITRIL\VALSARTAN
     Indication: Cardiac failure
     Dosage: START BETWEEN 07.09.2022 AND 08.09.2022
     Route: 048
     Dates: start: 202209

REACTIONS (2)
  - Pruritus [Recovered/Resolved]
  - Rash [Not Recovered/Not Resolved]

NARRATIVE: CASE EVENT DATE: 20220908
